FAERS Safety Report 24452309 (Version 1)
Quarter: 2024Q4

REPORT INFORMATION
  Report Type: Spontaneous
  Country: US (occurrence: US)
  Receive Date: 20241017
  Receipt Date: 20241017
  Transmission Date: 20250114
  Serious: No
  Sender: SUNOVION
  Company Number: US-UROVANT SCIENCES GMBH-202402-URV-000235

PATIENT
  Sex: Male

DRUGS (1)
  1. GEMTESA [Suspect]
     Active Substance: VIBEGRON
     Indication: Product used for unknown indication
     Dosage: UNK, QD
     Route: 065
     Dates: start: 20240210, end: 20240214

REACTIONS (6)
  - Urethritis noninfective [Unknown]
  - Dysuria [Unknown]
  - Urinary hesitation [Unknown]
  - Urine flow decreased [Unknown]
  - Pollakiuria [Unknown]
  - Drug ineffective [Unknown]
